FAERS Safety Report 9710402 (Version 1)
Quarter: 2013Q4

REPORT INFORMATION
  Report Type: Spontaneous
  Country: US (occurrence: US)
  Receive Date: 20131126
  Receipt Date: 20131126
  Transmission Date: 20140711
  Serious: No
  Sender: FDA-Public Use
  Company Number: US-BRISTOL-MYERS SQUIBB COMPANY-18974337

PATIENT
  Age: 49 Year
  Sex: Male

DRUGS (1)
  1. BYDUREON [Suspect]
     Dates: start: 20130516

REACTIONS (1)
  - Blood glucose increased [Not Recovered/Not Resolved]
